FAERS Safety Report 4544191-0 (Version None)
Quarter: 2004Q4

REPORT INFORMATION
  Report Type: 
  Country: None (occurrence: None)
  Receive Date: 20041230
  Receipt Date: 20040921
  Transmission Date: 20050328
  Serious: Yes (Hospitalization)
  Sender: FDA-Public Use
  Company Number: 1668

PATIENT
  Age: 55 Year
  Sex: Male
  Weight: 112.4921 kg

DRUGS (5)
  1. AVINZA [Suspect]
     Indication: BACK PAIN
     Dosage: 30 MG QD PO
     Route: 048
     Dates: start: 20030101, end: 20040701
  2. AVINZA [Suspect]
     Indication: BACK PAIN
     Dosage: 90 MG QD PO
     Route: 048
     Dates: start: 20040701, end: 20040701
  3. AVINZA [Suspect]
     Indication: BACK PAIN
     Dosage: 30 MG QD PO
     Route: 048
     Dates: start: 20040701, end: 20040101
  4. AVINZA [Suspect]
     Indication: BACK PAIN
     Dosage: 90 MG QD PO
     Route: 048
     Dates: start: 20040101
  5. GABAPENTIN [Concomitant]

REACTIONS (7)
  - ACCIDENTAL OVERDOSE [None]
  - ADVERSE EVENT [None]
  - ATRIAL FIBRILLATION [None]
  - COMA [None]
  - HYPOTENSION [None]
  - MEDICATION ERROR [None]
  - RESPIRATORY DEPRESSION [None]
